FAERS Safety Report 5597461-1 (Version None)
Quarter: 2007Q4

REPORT INFORMATION
  Report Type: 
  Country: None (occurrence: None)
  Receive Date: 20071221
  Receipt Date: 20071008
  Transmission Date: 20080405
  Serious: No
  Sender: FDA-Public Use
  Company Number: SPV1-2007-04454

PATIENT
  Age: 8 Year
  Sex: Male

DRUGS (1)
  1. VYVANSE [Suspect]
     Dosage: 30 MG, 1X/DAY:QD, ORAL
     Route: 048
     Dates: start: 20071006, end: 20071007

REACTIONS (4)
  - AGGRESSION [None]
  - INITIAL INSOMNIA [None]
  - MANIA [None]
  - WRONG TECHNIQUE IN DRUG USAGE PROCESS [None]
